FAERS Safety Report 5744929-0 (Version None)
Quarter: 2008Q2

REPORT INFORMATION
  Report Type: 
  Country: None (occurrence: None)
  Receive Date: 20080521
  Receipt Date: 20080512
  Transmission Date: 20081010
  Serious: Yes (Other)
  Sender: FDA-Public Use
  Company Number: GB-RANBAXY-2008RR-15134

PATIENT

DRUGS (2)
  1. SERTRALINE [Suspect]
     Indication: ANXIETY
     Dosage: 75 MG, QD
  2. SERTRALINE [Suspect]
     Indication: DEPRESSION

REACTIONS (1)
  - ABORTION SPONTANEOUS [None]
